FAERS Safety Report 9250453 (Version 1)
Quarter: 2013Q1

REPORT INFORMATION
  Report Type: Spontaneous
  Country: US (occurrence: None)
  Receive Date: 20130305
  Receipt Date: 20130305
  Transmission Date: 20140127
  Serious: Yes (Other)
  Sender: FDA-Public Use
  Company Number: 163-21880-12063237

PATIENT
  Age: 69 Year
  Sex: Male
  Weight: 90.72 kg

DRUGS (10)
  1. REVLIMID [Suspect]
     Indication: MYELODYSPLASTIC SYNDROME
     Dosage: 1 IN 1 D
     Route: 048
     Dates: start: 201205
  2. LANTUS (INSULIN GLARGINE) [Concomitant]
  3. ASPIRIN (ACETYLSALICYLIC ACID) [Concomitant]
  4. ACETAMINOPHEN (PARACETAMOL) [Concomitant]
  5. FUROSEMIDE (FUROSEMIDE) [Concomitant]
  6. LISINOPRIL (LISINOPRIL) [Concomitant]
  7. SIMVASTATIN (SIMVASTATIN) [Concomitant]
  8. METOPROLOL (METOPROLOL) [Concomitant]
  9. ZESTRIL (LISINOPRIL) [Concomitant]
  10. ARANESP (DARBEPOETIN ALFA) [Concomitant]

REACTIONS (2)
  - No therapeutic response [None]
  - Pruritus [None]
